FAERS Safety Report 10044347 (Version 1)
Quarter: 2014Q1

REPORT INFORMATION
  Report Type: Report from Study
  Country: TW (occurrence: TW)
  Receive Date: 20140328
  Receipt Date: 20140328
  Transmission Date: 20141002
  Serious: Yes (Hospitalization)
  Sender: FDA-Public Use
  Company Number: TW-PFIZER INC-2014084854

PATIENT
  Age: 59 Year
  Sex: Male

DRUGS (8)
  1. IRINOTECAN HCL [Suspect]
     Indication: COLORECTAL CANCER
     Dosage: 250 MG, CYCLIC, EVERY 2 WEEKS
     Route: 042
     Dates: start: 20131211, end: 20140116
  2. IRINOTECAN HCL [Suspect]
     Dosage: 250 MG, CYCLIC, EVERY 2 WEEKS
     Route: 042
     Dates: start: 20140305
  3. FLUOROURACIL [Suspect]
     Indication: COLORECTAL CANCER
     Dosage: 4340 MG, CYCLIC, EVERY 2 WEEKS
     Route: 042
     Dates: start: 20131211, end: 20140116
  4. FLUOROURACIL [Suspect]
     Dosage: 4315 MG, CYCLIC, EVERY 2 WEEKS
     Route: 042
     Dates: start: 20140305
  5. BEVACIZUMAB [Suspect]
     Indication: COLORECTAL CANCER
     Dosage: 300 MG, CYCLIC, EVERY 2 WEEKS
     Route: 042
     Dates: start: 20131212, end: 20140117
  6. BEVACIZUMAB [Suspect]
     Dosage: 300 MG, CYCLIC, EVERY 2 WEEKS
     Route: 042
     Dates: start: 20140306
  7. CAPECITABINE [Suspect]
     Indication: COLORECTAL CANCER
     Dosage: 1500 MG, 2X/DAY
     Route: 048
     Dates: start: 20140211, end: 20140224
  8. MEGESTAT [Concomitant]
     Indication: CACHEXIA
     Dosage: 5 CC, 3X/DAY
     Route: 048
     Dates: start: 20131218

REACTIONS (2)
  - Device related infection [Recovered/Resolved]
  - Wound abscess [Recovered/Resolved]
